FAERS Safety Report 14595069 (Version 1)
Quarter: 2018Q1

REPORT INFORMATION
  Report Type: Spontaneous
  Country: US (occurrence: US)
  Receive Date: 20180302
  Receipt Date: 20180302
  Transmission Date: 20180509
  Serious: No
  Sender: FDA-Public Use
  Company Number: US-AKORN PHARMACEUTICALS-2017AKN00643

PATIENT
  Sex: Male
  Weight: 54.42 kg

DRUGS (1)
  1. MYORISAN [Suspect]
     Active Substance: ISOTRETINOIN
     Indication: SCAR
     Dosage: 30 MG, 2X/DAY
     Route: 048
     Dates: start: 20170217, end: 201704

REACTIONS (1)
  - Headache [Unknown]

NARRATIVE: CASE EVENT DATE: 2017
